FAERS Safety Report 8124721-2 (Version None)
Quarter: 2012Q1

REPORT INFORMATION
  Report Type: 
  Country: None (occurrence: None)
  Receive Date: 20120209
  Receipt Date: 20120131
  Transmission Date: 20120608
  Serious: Yes (Hospitalization)
  Sender: FDA-Public Use
  Company Number: US-BAYER-2011-057027

PATIENT
  Age: 33 Year
  Sex: Female
  Weight: 149 kg

DRUGS (4)
  1. ELEMENTAL IRON [Concomitant]
  2. LORTAB [Concomitant]
  3. OGESTREL 0.5/50-21 [Concomitant]
     Dosage: UNK
     Dates: start: 20090811, end: 20090818
  4. YAZ [Suspect]
     Indication: CONTRACEPTION
     Dosage: UNK
     Route: 048
     Dates: start: 20090528, end: 20090810

REACTIONS (8)
  - DEEP VEIN THROMBOSIS [None]
  - INJURY [None]
  - OEDEMA PERIPHERAL [None]
  - PULMONARY EMBOLISM [None]
  - PAIN IN EXTREMITY [None]
  - ANHEDONIA [None]
  - DYSPNOEA [None]
  - EMOTIONAL DISTRESS [None]
